FAERS Safety Report 25989986 (Version 1)
Quarter: 2025Q4

REPORT INFORMATION
  Report Type: Spontaneous
  Country: US (occurrence: None)
  Receive Date: 20251102
  Receipt Date: 20251102
  Transmission Date: 20260118
  Serious: Yes (Hospitalization)
  Sender: FDA-CTU
  Company Number: None

PATIENT
  Age: 42 Year
  Sex: Female
  Weight: 81 kg

DRUGS (3)
  1. COSENTYX [Suspect]
     Active Substance: SECUKINUMAB
     Dosage: SUBCUTANEOUS
     Route: 058
     Dates: start: 20251030, end: 20251030
  2. VALTREX [Concomitant]
     Active Substance: VALACYCLOVIR HYDROCHLORIDE
  3. Laxatives maximum strength [Concomitant]

REACTIONS (16)
  - Dry mouth [None]
  - Dysphagia [None]
  - Swollen tongue [None]
  - Swelling face [None]
  - Eye swelling [None]
  - Peripheral swelling [None]
  - Fatigue [None]
  - Headache [None]
  - Nasal congestion [None]
  - Dyspnoea [None]
  - Anxiety [None]
  - Restlessness [None]
  - Heart rate increased [None]
  - Asthenia [None]
  - Pharyngeal swelling [None]
  - Feeling abnormal [None]

NARRATIVE: CASE EVENT DATE: 20251101
